APPROVED DRUG PRODUCT: SPORANOX
Active Ingredient: ITRACONAZOLE
Strength: 10MG/ML
Dosage Form/Route: SOLUTION;ORAL
Application: N020657 | Product #001
Applicant: JANSSEN PHARMACEUTICALS INC
Approved: Feb 21, 1997 | RLD: Yes | RS: No | Type: DISCN